FAERS Safety Report 13553371 (Version 2)
Quarter: 2017Q2

REPORT INFORMATION
  Report Type: Spontaneous
  Country: JP (occurrence: JP)
  Receive Date: 20170517
  Receipt Date: 20170523
  Transmission Date: 20170830
  Serious: Yes (Other)
  Sender: FDA-Public Use
  Company Number: JP-BAXTER-2017BAX017637

PATIENT
  Age: 40 Year
  Sex: Male

DRUGS (9)
  1. BLEOMYCIN [Suspect]
     Active Substance: BLEOMYCIN SULFATE
     Indication: TESTICULAR NEOPLASM
     Dosage: BEP THERAPY
     Route: 065
  2. CELLTOP 100 MG/5 ML, SOLUTION INJECTABLE POUR PERFUSION [Suspect]
     Active Substance: ETOPOSIDE
     Dosage: FIRST COURSE OF VIP THERAPY
     Route: 065
  3. IFOSFAMIDE FOR INJECTION [Suspect]
     Active Substance: IFOSFAMIDE
     Indication: TESTICULAR NEOPLASM
     Dosage: FIRST COURSE OF VIP THERAPY
     Route: 065
  4. CISPLATIN. [Suspect]
     Active Substance: CISPLATIN
     Dosage: 2ND COURSE OF VIP THERAPY
     Route: 065
     Dates: start: 20170509
  5. IFOSFAMIDE FOR INJECTION [Suspect]
     Active Substance: IFOSFAMIDE
     Dosage: 2ND COURSE OF VIP THERAPY
     Route: 065
     Dates: start: 20170509
  6. CELLTOP 100 MG/5 ML, SOLUTION INJECTABLE POUR PERFUSION [Suspect]
     Active Substance: ETOPOSIDE
     Dosage: 2ND COURSE OF VIP THERAPY
     Route: 065
     Dates: start: 20170509
  7. CELLTOP 100 MG/5 ML, SOLUTION INJECTABLE POUR PERFUSION [Suspect]
     Active Substance: ETOPOSIDE
     Indication: TESTICULAR NEOPLASM
     Dosage: BEP THERAPY
     Route: 065
  8. CISPLATIN. [Suspect]
     Active Substance: CISPLATIN
     Indication: TESTICULAR NEOPLASM
     Dosage: BEP THERAPY
     Route: 065
  9. CISPLATIN. [Suspect]
     Active Substance: CISPLATIN
     Dosage: FIRST COURSE OF VIP THERAPY
     Route: 065

REACTIONS (1)
  - Liver disorder [Recovered/Resolved]
